FAERS Safety Report 9742657 (Version 2)
Quarter: 2013Q4

REPORT INFORMATION
  Report Type: Spontaneous
  Country: US (occurrence: US)
  Receive Date: 20131210
  Receipt Date: 20131210
  Transmission Date: 20140711
  Serious: No
  Sender: FDA-Public Use
  Company Number: US-GILEAD-2009-0025223

PATIENT
  Age: 55 Year
  Sex: Female
  Weight: 118.39 kg

DRUGS (13)
  1. LETAIRIS [Suspect]
     Indication: PULMONARY ARTERIAL HYPERTENSION
     Route: 048
     Dates: start: 20090924, end: 20091019
  2. LEVOTHYROXINE SODIUM [Concomitant]
  3. SERTRALINE HCL [Concomitant]
  4. ACTOS [Concomitant]
  5. ASPIRIN [Concomitant]
  6. CYMBALTA [Concomitant]
  7. FUROSEMIDE [Concomitant]
  8. HUMALOG [Concomitant]
  9. INDERAL LA [Concomitant]
  10. LAMISIL [Concomitant]
  11. METFORMIN HCL [Concomitant]
  12. PLAVIX [Concomitant]
  13. LANTUS [Concomitant]
     Dates: start: 20060616

REACTIONS (1)
  - Oedema [Recovered/Resolved]
